FAERS Safety Report 6808333-6 (Version None)
Quarter: 2010Q2

REPORT INFORMATION
  Report Type: 
  Country: None (occurrence: None)
  Receive Date: 20100629
  Receipt Date: 20090615
  Transmission Date: 20101027
  Serious: No
  Sender: FDA-Public Use
  Company Number: US-PFIZER INC-2009213705

PATIENT
  Age: 78 Year
  Sex: Female

DRUGS (2)
  1. XANAX [Suspect]
     Indication: INSOMNIA
     Dosage: UNK
  2. AMBIEN [Suspect]
     Indication: INSOMNIA
     Dosage: UNK

REACTIONS (1)
  - INSOMNIA [None]
